FAERS Safety Report 7021858-6 (Version None)
Quarter: 2010Q3

REPORT INFORMATION
  Report Type: 
  Country: None (occurrence: None)
  Receive Date: 20100930
  Receipt Date: 20100920
  Transmission Date: 20110219
  Serious: Yes (Hospitalization, Other)
  Sender: FDA-Public Use
  Company Number: US-US-EMD SERONO, INC.-230004M09USA

PATIENT
  Sex: Female
  Weight: 85 kg

DRUGS (2)
  1. REBIF [Suspect]
     Indication: MULTIPLE SCLEROSIS
     Route: 058
     Dates: start: 20041001, end: 20090101
  2. REBIF [Suspect]
     Route: 058
     Dates: start: 20091001, end: 20100101

REACTIONS (3)
  - BREAST CANCER IN SITU [None]
  - METASTASES TO CENTRAL NERVOUS SYSTEM [None]
  - OVARIAN CANCER [None]
